FAERS Safety Report 8440465-1 (Version None)
Quarter: 2012Q2

REPORT INFORMATION
  Report Type: 
  Country: None (occurrence: None)
  Receive Date: 20120615
  Receipt Date: 20120607
  Transmission Date: 20120825
  Serious: Yes (Hospitalization)
  Sender: FDA-Public Use
  Company Number: US-GLAXOSMITHKLINE-A0981064A

PATIENT
  Age: 38 Year
  Sex: Female
  Weight: 100 kg

DRUGS (5)
  1. RISPERDAL [Suspect]
     Indication: BIPOLAR I DISORDER
     Dosage: 2MG PER DAY
     Route: 048
  2. ELAVIL [Concomitant]
     Indication: DEPRESSION
     Dosage: 50MG PER DAY
     Route: 048
     Dates: start: 20111116
  3. LAMICTAL [Suspect]
     Indication: DEPRESSION
     Dosage: 50MG PER DAY
     Route: 048
     Dates: start: 20111116
  4. WELLBUTRIN SR [Concomitant]
     Dosage: 300MG PER DAY
     Dates: start: 20120206, end: 20120101
  5. ADDERALL XR 10 [Concomitant]
     Indication: ATTENTION DEFICIT/HYPERACTIVITY DISORDER
     Dosage: 20MG PER DAY
     Route: 048

REACTIONS (9)
  - RHABDOMYOLYSIS [None]
  - OVERDOSE [None]
  - ARRHYTHMIA [None]
  - CONVULSION [None]
  - ANGER [None]
  - AGGRESSION [None]
  - SUICIDE ATTEMPT [None]
  - ENCEPHALOPATHY [None]
  - EMOTIONAL DISTRESS [None]
